FAERS Safety Report 4848398-4 (Version None)
Quarter: 2005Q4

REPORT INFORMATION
  Report Type: 
  Country: None (occurrence: None)
  Receive Date: 20051208
  Receipt Date: 20051129
  Transmission Date: 20060501
  Serious: Yes (Hospitalization)
  Sender: FDA-Public Use
  Company Number: FR-ROCHE-426460

PATIENT
  Age: 46 Year
  Sex: Female

DRUGS (2)
  1. RIBAVIRIN [Suspect]
     Route: 065
     Dates: start: 20000615
  2. INTERFERON ALFA-2B [Suspect]
     Dosage: DOSING AMOUNT REPORTED AS 3 MU (MILLION UNITS)
     Route: 065
     Dates: start: 20000615

REACTIONS (4)
  - ANTIBODY TEST POSITIVE [None]
  - COELIAC DISEASE [None]
  - HYPOKALAEMIA [None]
  - WEIGHT DECREASED [None]
